FAERS Safety Report 8121293-3 (Version None)
Quarter: 2012Q1

REPORT INFORMATION
  Report Type: 
  Country: None (occurrence: None)
  Receive Date: 20120208
  Receipt Date: 20120127
  Transmission Date: 20120608
  Serious: Yes (Hospitalization, Other)
  Sender: FDA-Public Use
  Company Number: MX-SANOFI-AVENTIS-2012SA006138

PATIENT
  Sex: Female
  Weight: 60 kg

DRUGS (8)
  1. HYDROCHLOROTHIAZIDE [Concomitant]
     Dosage: STRENGTH:25MG
     Route: 048
     Dates: start: 19990101, end: 20120123
  2. CALTRATE [Concomitant]
     Indication: OSTEOPOROSIS
     Dosage: STRENGTH:600MG+ 200UI
     Route: 048
     Dates: start: 19990101, end: 20120123
  3. CYCLOSPORINE [Concomitant]
     Route: 047
     Dates: start: 20060101
  4. OMEPRAZOLE [Concomitant]
     Indication: COLITIS
     Dosage: STRENGTH:40MG
     Route: 048
     Dates: end: 20120123
  5. ARAVA [Suspect]
     Indication: RHEUMATOID ARTHRITIS
     Route: 048
     Dates: start: 20070101, end: 20120123
  6. RISEDRONATE SODIUM [Concomitant]
     Indication: OSTEOPOROSIS
     Dosage: STRENGTH:35MG
     Route: 048
     Dates: start: 19990101, end: 20120123
  7. REFRESH [Concomitant]
     Dosage: STRENGTH:1%, FREQUENCY: EVERY 2 HRS
     Route: 047
     Dates: start: 20060101
  8. ENALAPRIL MALEATE [Concomitant]
     Dosage: STRENGTH:10MG
     Route: 048
     Dates: start: 19990101, end: 20120123

REACTIONS (11)
  - OROPHARYNGEAL PAIN [None]
  - CHEST PAIN [None]
  - WEIGHT DECREASED [None]
  - GASTROOESOPHAGEAL REFLUX DISEASE [None]
  - PNEUMONIA [None]
  - GASTROENTERITIS [None]
  - NAUSEA [None]
  - DIARRHOEA [None]
  - ABDOMINAL PAIN UPPER [None]
  - RECTAL TENESMUS [None]
  - DYSPEPSIA [None]
